FAERS Safety Report 21932447 (Version 1)
Quarter: 2023Q1

REPORT INFORMATION
  Report Type: Spontaneous
  Country: US (occurrence: US)
  Receive Date: 20230131
  Receipt Date: 20230131
  Transmission Date: 20230417
  Serious: Yes (Death, Hospitalization)
  Sender: FDA-Public Use
  Company Number: US-AMNEAL PHARMACEUTICALS-2023-AMRX-00243

PATIENT
  Sex: Male
  Weight: 13.5 kg

DRUGS (2)
  1. VIGABATRIN [Suspect]
     Active Substance: VIGABATRIN
     Indication: Epilepsy
     Dosage: 500 MILLIGRAM, BID
     Route: 048
     Dates: start: 20220401, end: 20230114
  2. EPIDIOLEX [Concomitant]
     Active Substance: CANNABIDIOL
     Indication: Epilepsy
     Route: 065

REACTIONS (6)
  - Acute respiratory failure [Fatal]
  - Acute respiratory distress syndrome [Fatal]
  - Hypercapnia [Fatal]
  - Respiratory acidosis [Fatal]
  - Pneumonia respiratory syncytial viral [Fatal]
  - Respiratory failure [Fatal]
